FAERS Safety Report 22343977 (Version 1)
Quarter: 2023Q2

REPORT INFORMATION
  Report Type: Spontaneous
  Country: US (occurrence: None)
  Receive Date: 20230518
  Receipt Date: 20230518
  Transmission Date: 20230722
  Serious: Yes (Life-Threatening)
  Sender: FDA-Public Use
  Company Number: None

PATIENT
  Age: 6 Year
  Sex: Male
  Weight: 23.85 kg

DRUGS (3)
  1. LOLLEEZ VARIETY PACK [Suspect]
     Active Substance: PECTIN
     Indication: Cough
     Dosage: FREQUENCY : AS NEEDED;?
     Route: 048
     Dates: start: 20230508, end: 20230508
  2. LOLLEEZ VARIETY PACK [Suspect]
     Active Substance: PECTIN
     Indication: Oropharyngeal pain
  3. Multivitamin/probiotic gummies [Concomitant]

REACTIONS (4)
  - Product physical issue [None]
  - Choking [None]
  - Vomiting [None]
  - Product use issue [None]

NARRATIVE: CASE EVENT DATE: 20230508
